FAERS Safety Report 5316281-6 (Version None)
Quarter: 2007Q2

REPORT INFORMATION
  Report Type: 
  Country: None (occurrence: None)
  Receive Date: 20070427
  Receipt Date: 20070424
  Transmission Date: 20071010
  Serious: Yes (Other)
  Sender: FDA-Public Use
  Company Number: 0704-302

PATIENT
  Age: 16 Year
  Sex: Male

DRUGS (1)
  1. ALBUTEROL SULATE [Suspect]

REACTIONS (9)
  - BLOOD LACTIC ACID INCREASED [None]
  - BLOOD PH DECREASED [None]
  - COMA [None]
  - DYSPNOEA [None]
  - OXYGEN SATURATION DECREASED [None]
  - PO2 DECREASED [None]
  - TACHYCARDIA [None]
  - TREATMENT NONCOMPLIANCE [None]
  - WHEEZING [None]
